FAERS Safety Report 8957447 (Version 1)
Quarter: 2012Q4

REPORT INFORMATION
  Report Type: 
  Country: US (occurrence: US)
  Receive Date: 20121211
  Receipt Date: 20121211
  Transmission Date: 20130627
  Serious: Yes (Life-Threatening, Other)
  Sender: FDA-Public Use
  Company Number: US-SHIONOGI, INC-2012000320

PATIENT
  Age: 13 Year
  Sex: Female

DRUGS (6)
  1. AMOXICILLIN [Suspect]
     Indication: PYREXIA
  2. AMOXICILLIN [Suspect]
     Indication: NAUSEA
  3. AMOXICILLIN [Suspect]
     Indication: VOMITING
  4. ANTIINFLAMMATORY AGENTS, NON-STEROIDS [Suspect]
     Indication: PYREXIA
     Dosage: UNK
  5. ANTIINFLAMMATORY AGENTS, NON-STEROID S [Suspect]
     Indication: NAUSEA
  6. ANTIINFLAMMATORY AGENTS, NON-STEROIDS [Suspect]
     Indication: VOMITING

REACTIONS (3)
  - Drug reaction with eosinophilia and systemic symptoms [Recovered/Resolved]
  - Delirium [Recovered/Resolved]
  - Convulsion [Recovered/Resolved]
